FAERS Safety Report 19907112 (Version 1)
Quarter: 2021Q4

REPORT INFORMATION
  Report Type: Spontaneous
  Country: CA (occurrence: CA)
  Receive Date: 20211001
  Receipt Date: 20211001
  Transmission Date: 20220303
  Serious: Yes (Hospitalization, Other)
  Sender: FDA-Public Use
  Company Number: CA-TEVA-2021-CA-1959625

PATIENT
  Age: 16 Year
  Sex: Female

DRUGS (4)
  1. PROPOFOL [Suspect]
     Active Substance: PROPOFOL
     Indication: Sedation
     Route: 065
  2. PROPOFOL [Suspect]
     Active Substance: PROPOFOL
     Route: 065
  3. PROPOFOL [Suspect]
     Active Substance: PROPOFOL
     Route: 065
  4. REMIFENTANIL [Concomitant]
     Active Substance: REMIFENTANIL
     Route: 065

REACTIONS (5)
  - Anaphylactic reaction [Unknown]
  - Cough [Unknown]
  - Rash [Unknown]
  - Swollen tongue [Unknown]
  - Wheezing [Unknown]
